FAERS Safety Report 22517488 (Version 1)
Quarter: 2023Q2

REPORT INFORMATION
  Report Type: Spontaneous
  Country: DE (occurrence: DE)
  Receive Date: 20230603
  Receipt Date: 20230603
  Transmission Date: 20230721
  Serious: Yes (Other)
  Sender: FDA-Public Use
  Company Number: DE-ROCHE-3354798

PATIENT
  Age: 19 Year
  Sex: Male

DRUGS (9)
  1. TACROLIMUS [Suspect]
     Active Substance: TACROLIMUS
     Indication: Urinary tract malformation
     Dosage: UNK
     Route: 065
  2. TACROLIMUS [Suspect]
     Active Substance: TACROLIMUS
     Indication: Kidney malformation
  3. PREDNISONE [Suspect]
     Active Substance: PREDNISONE
     Indication: Urinary tract malformation
     Dosage: UNK
     Route: 065
  4. PREDNISONE [Suspect]
     Active Substance: PREDNISONE
     Indication: Kidney malformation
  5. MYCOPHENOLATE MOFETIL [Interacting]
     Active Substance: MYCOPHENOLATE MOFETIL
     Indication: Kidney malformation
     Dosage: UNK
  6. MYCOPHENOLATE MOFETIL [Interacting]
     Active Substance: MYCOPHENOLATE MOFETIL
     Indication: Urinary tract malformation
  7. RITUXIMAB [Interacting]
     Active Substance: RITUXIMAB
     Indication: Kidney malformation
     Dosage: UNK
  8. RITUXIMAB [Interacting]
     Active Substance: RITUXIMAB
     Indication: Urinary tract malformation
  9. TOZINAMERAN [Interacting]
     Active Substance: TOZINAMERAN
     Indication: COVID-19 prophylaxis
     Dosage: UNK

REACTIONS (3)
  - Humoral immune defect [Unknown]
  - Vaccine interaction [Unknown]
  - Off label use [Unknown]
